FAERS Safety Report 4877283-7 (Version None)
Quarter: 2006Q1

REPORT INFORMATION
  Report Type: 
  Country: None (occurrence: None)
  Receive Date: 20060106
  Receipt Date: 20050901
  Transmission Date: 20060701
  Serious: Yes (Hospitalization)
  Sender: FDA-Public Use
  Company Number: 2006-CZ-00021

PATIENT
  Age: 23 Year
  Sex: Female

DRUGS (1)
  1. PREDNISOLONE TAB [Suspect]
     Indication: DERMATITIS ATOPIC
     Dosage: DOSE OF 40 MG, ORAL
     Route: 048

REACTIONS (3)
  - FALL [None]
  - TYPE I HYPERSENSITIVITY [None]
  - TYPE IV HYPERSENSITIVITY REACTION [None]
